FAERS Safety Report 5775547-6 (Version None)
Quarter: 2008Q2

REPORT INFORMATION
  Report Type: 
  Country: None (occurrence: None)
  Receive Date: 20080612
  Receipt Date: 20080529
  Transmission Date: 20081010
  Serious: Yes (Death)
  Sender: FDA-Public Use
  Company Number: L08-FRA-01995-04

PATIENT

DRUGS (7)
  1. MEMANTINE HCL [Suspect]
  2. CLOPIDOGREL [Concomitant]
  3. ACEBUTOLOL [Concomitant]
  4. DONEPEZIL HCL [Concomitant]
  5. PAROXETINE HCL [Concomitant]
  6. TIAPRIDE [Concomitant]
  7. MEPROBAMATE [Concomitant]

REACTIONS (1)
  - BRADYCARDIA [None]
